FAERS Safety Report 9856613 (Version 3)
Quarter: 2014Q4

REPORT INFORMATION
  Report Type: Spontaneous
  Country: US (occurrence: US)
  Receive Date: 20140130
  Receipt Date: 20141205
  Transmission Date: 20150529
  Serious: Yes (Death, Hospitalization, Other)
  Sender: FDA-Public Use
  Company Number: US-009507513-1401USA013639

PATIENT
  Sex: Male
  Weight: 113.38 kg

DRUGS (1)
  1. JANUVIA [Suspect]
     Active Substance: SITAGLIPTIN PHOSPHATE
     Indication: TYPE 2 DIABETES MELLITUS
     Dosage: 100 MG, QD
     Route: 048
     Dates: start: 20100811, end: 20101206

REACTIONS (14)
  - Metastases to liver [Unknown]
  - Osteoarthritis [Not Recovered/Not Resolved]
  - Pancreatic carcinoma metastatic [Fatal]
  - Cyst [Unknown]
  - Atrial fibrillation [Not Recovered/Not Resolved]
  - Metastases to lung [Unknown]
  - Vena cava filter insertion [Unknown]
  - Constipation [Unknown]
  - Restless legs syndrome [Not Recovered/Not Resolved]
  - Abdominal hernia [Unknown]
  - Chronic obstructive pulmonary disease [Not Recovered/Not Resolved]
  - Hypertension [Not Recovered/Not Resolved]
  - Haemorrhoids thrombosed [Unknown]
  - Deep vein thrombosis [Unknown]

NARRATIVE: CASE EVENT DATE: 201008
